FAERS Safety Report 6123156-1 (Version None)
Quarter: 2009Q1

REPORT INFORMATION
  Report Type: 
  Country: None (occurrence: None)
  Receive Date: 20090318
  Receipt Date: 20090309
  Transmission Date: 20090719
  Serious: Yes (Other)
  Sender: FDA-Public Use
  Company Number: US-JNJFOC-20090302980

PATIENT
  Age: 50 Year
  Sex: Female
  Weight: 95.26 kg

DRUGS (6)
  1. EXTRA STRENGTH TYLENOL [Suspect]
     Route: 048
  2. EXTRA STRENGTH TYLENOL [Suspect]
     Indication: PAIN IN EXTREMITY
     Route: 048
  3. NERVE MEDICATION [Concomitant]
  4. ASPIRIN [Concomitant]
  5. HEART MEDICATION [Concomitant]
  6. BENADRYL [Concomitant]

REACTIONS (1)
  - DYSPHAGIA [None]
